FAERS Safety Report 14434949 (Version 2)
Quarter: 2018Q1

REPORT INFORMATION
  Report Type: Spontaneous
  Country: US (occurrence: US)
  Receive Date: 20180125
  Receipt Date: 20180201
  Transmission Date: 20180509
  Serious: Yes (Hospitalization)
  Sender: FDA-Public Use
  Company Number: US-CIPLA LTD.-2018US01436

PATIENT

DRUGS (1)
  1. LAMOTRIGINE. [Suspect]
     Active Substance: LAMOTRIGINE
     Indication: PRODUCT USED FOR UNKNOWN INDICATION
     Dosage: 150 MG PILLS (5 TO 10 PILLS APPEARED)
     Route: 048

REACTIONS (5)
  - Respiratory arrest [Recovered/Resolved]
  - Accidental exposure to product by child [Unknown]
  - Overdose [Unknown]
  - Hypotension [Unknown]
  - Status epilepticus [Recovered/Resolved]
